FAERS Safety Report 13648223 (Version 3)
Quarter: 2018Q2

REPORT INFORMATION
  Report Type: Other
  Country: IT (occurrence: IT)
  Receive Date: 20170613
  Receipt Date: 20180422
  Transmission Date: 20180711
  Serious: Yes (Other)
  Sender: FDA-Public Use
  Company Number: IT-APOTEX-2017AP013007

PATIENT
  Age: 23 Year
  Sex: Male

DRUGS (2)
  1. CLARITROMICINA DOC GENERICI [Suspect]
     Active Substance: CLARITHROMYCIN
     Indication: HELICOBACTER GASTRITIS
     Dosage: 1 G, QD
     Route: 048
     Dates: start: 20151222, end: 20151228
  2. AMOXICILLIN. [Suspect]
     Active Substance: AMOXICILLIN
     Indication: HELICOBACTER GASTRITIS
     Dosage: 2 G, QD
     Route: 048
     Dates: start: 20151222, end: 20151228

REACTIONS (2)
  - Pruritus generalised [Recovering/Resolving]
  - Rash maculo-papular [Recovering/Resolving]

NARRATIVE: CASE EVENT DATE: 20151228
